FAERS Safety Report 5194377-X (Version None)
Quarter: 2006Q4

REPORT INFORMATION
  Report Type: 
  Country: None (occurrence: None)
  Receive Date: 20061228
  Receipt Date: 20061219
  Transmission Date: 20070319
  Serious: Yes (Hospitalization)
  Sender: FDA-Public Use
  Company Number: CH-PFIZER INC-2006154631

PATIENT
  Age: 89 Year
  Sex: Female

DRUGS (5)
  1. ZOLOFT [Suspect]
     Route: 048
  2. SINTROM [Suspect]
     Dosage: FREQ:AS NECESSARY
     Route: 048
  3. NITRODERM [Concomitant]
     Route: 062
  4. LORAZEPAM [Concomitant]
     Route: 048
  5. TRIATEC [Concomitant]
     Route: 048

REACTIONS (6)
  - ANAEMIA [None]
  - GASTRIC HAEMORRHAGE [None]
  - INCORRECT DOSE ADMINISTERED [None]
  - INTERNATIONAL NORMALISED RATIO INCREASED [None]
  - MELAENA [None]
  - PROTHROMBIN TIME PROLONGED [None]
